FAERS Safety Report 20135054 (Version 3)
Quarter: 2022Q1

REPORT INFORMATION
  Report Type: Report from Study
  Country: US (occurrence: US)
  Receive Date: 20211201
  Receipt Date: 20220204
  Transmission Date: 20220424
  Serious: Yes (Hospitalization, Other)
  Sender: FDA-Public Use
  Company Number: US-GILEAD-2021-0558893

PATIENT
  Age: 61 Year
  Sex: Female

DRUGS (1)
  1. AMBRISENTAN [Suspect]
     Active Substance: AMBRISENTAN
     Indication: Product used for unknown indication
     Dosage: 5 MG, QD
     Route: 048
     Dates: start: 20190208

REACTIONS (10)
  - Chest pain [Unknown]
  - Cardiac disorder [Unknown]
  - Paraesthesia [Unknown]
  - Coronary artery occlusion [Unknown]
  - Chest pain [Unknown]
  - Dyspnoea exertional [Unknown]
  - Fatigue [Unknown]
  - Cardiac valve thickening [Unknown]
  - Heart valve incompetence [Unknown]
  - Intentional product use issue [Unknown]

NARRATIVE: CASE EVENT DATE: 20211223
